FAERS Safety Report 6463933-0 (Version None)
Quarter: 2009Q4

REPORT INFORMATION
  Report Type: 
  Country: None (occurrence: None)
  Receive Date: 20091201
  Receipt Date: 20091125
  Transmission Date: 20100525
  Serious: Yes (Death)
  Sender: FDA-Public Use
  Company Number: JP-JNJFOC-20091106020

PATIENT
  Age: 81 Year
  Sex: Female

DRUGS (5)
  1. DUROTEP MT PATCH [Suspect]
     Route: 062
  2. DUROTEP MT PATCH [Suspect]
     Dosage: HALF PATCH OF 50 UG/HR
     Route: 062
  3. DUROTEP MT PATCH [Suspect]
     Route: 062
  4. DUROTEP MT PATCH [Suspect]
     Indication: METASTATIC RENAL CELL CARCINOMA
     Route: 062
  5. MORPHINE HYDROCHLORIDE [Concomitant]
     Route: 054

REACTIONS (3)
  - MALIGNANT NEOPLASM PROGRESSION [None]
  - SOMNOLENCE [None]
  - WRONG TECHNIQUE IN DRUG USAGE PROCESS [None]
